FAERS Safety Report 7966411-2 (Version None)
Quarter: 2011Q4

REPORT INFORMATION
  Report Type: 
  Country: None (occurrence: None)
  Receive Date: 20111208
  Receipt Date: 20111129
  Transmission Date: 20120403
  Serious: Yes (Hospitalization)
  Sender: FDA-Public Use
  Company Number: FR-ROCHE-1017118

PATIENT
  Sex: Female
  Weight: 76 kg

DRUGS (3)
  1. LEXOMIL [Concomitant]
     Dates: start: 20110304
  2. RANIBIZUMAB [Suspect]
     Indication: DIABETIC RETINAL OEDEMA
     Dosage: DATE OF LAST DOSE PRIOR TO SAE: 27SEP2011
     Route: 050
     Dates: start: 20110329
  3. IRBESARTAN AND HYDROCHLOROTHIAZIDE [Concomitant]
     Dates: start: 20000101

REACTIONS (1)
  - DIABETES MELLITUS [None]
